FAERS Safety Report 4733477-2 (Version None)
Quarter: 2005Q3

REPORT INFORMATION
  Report Type: 
  Country: None (occurrence: None)
  Receive Date: 20050801
  Receipt Date: 20050727
  Transmission Date: 20060218
  Serious: Yes (Life-Threatening)
  Sender: FDA-Public Use
  Company Number: GBWYE641004MAY05

PATIENT
  Age: 55 Year
  Sex: Female

DRUGS (8)
  1. EFFEXOR XR [Suspect]
     Indication: DEPRESSION
     Dosage: SEE IMAGE
     Route: 048
     Dates: start: 20030315, end: 20050308
  2. EFFEXOR XR [Suspect]
     Indication: DEPRESSION
     Dosage: SEE IMAGE
     Route: 048
     Dates: start: 20040308, end: 20050701
  3. ASPIRIN [Concomitant]
  4. METOPROLOL TARTRATE [Concomitant]
  5. SIMVASTATIN (SIMVASTATIN0 [Concomitant]
  6. PERINDOPRIL (PERINDOPRIL) [Concomitant]
  7. ISOSORBIDE MONONITRATE [Concomitant]
  8. ACETAMINOPHEN W/ CODEINE [Concomitant]

REACTIONS (18)
  - ACUTE CORONARY SYNDROME [None]
  - AVERSION [None]
  - BALANCE DISORDER [None]
  - DISTURBANCE IN ATTENTION [None]
  - FATIGUE [None]
  - GASTRITIS [None]
  - GLOSSODYNIA [None]
  - GLUCOSE TOLERANCE IMPAIRED [None]
  - HEADACHE [None]
  - MEMORY IMPAIRMENT [None]
  - MUSCLE SPASMS [None]
  - NASOPHARYNGEAL DISORDER [None]
  - ORAL PAIN [None]
  - PERIPHERAL COLDNESS [None]
  - REFLUX OESOPHAGITIS [None]
  - RHINORRHOEA [None]
  - SLEEP DISORDER [None]
  - TENDERNESS [None]
